FAERS Safety Report 7420804-0 (Version None)
Quarter: 2011Q2

REPORT INFORMATION
  Report Type: 
  Country: None (occurrence: None)
  Receive Date: 20110418
  Receipt Date: 20110404
  Transmission Date: 20111010
  Serious: Yes (Hospitalization)
  Sender: FDA-Public Use
  Company Number: US-ROCHE-768930

PATIENT

DRUGS (2)
  1. RIBAVIRIN [Suspect]
     Route: 048
  2. INFERGEN [Suspect]
     Route: 058

REACTIONS (1)
  - ENCEPHALOPATHY [None]
